FAERS Safety Report 10162974 (Version 1)
Quarter: 2014Q2

REPORT INFORMATION
  Report Type: Spontaneous
  Country: US (occurrence: US)
  Receive Date: 20140509
  Receipt Date: 20140509
  Transmission Date: 20141212
  Serious: Yes (Other)
  Sender: FDA-Public Use
  Company Number: US-PFIZER INC-2014124646

PATIENT
  Age: 66 Year
  Sex: Female
  Weight: 113 kg

DRUGS (6)
  1. PREMARIN [Suspect]
     Dosage: UNK
  2. HALDOL [Concomitant]
     Indication: BIPOLAR DISORDER
     Dosage: UNK
  3. VITAMIN E [Concomitant]
     Indication: HOT FLUSH
     Dosage: UNK
  4. SINEMET [Concomitant]
     Indication: PARKINSON^S DISEASE
     Dosage: UNK
  5. ASPIRIN [Concomitant]
     Indication: CARDIOVASCULAR EVENT PROPHYLAXIS
     Dosage: 81 MG, UNK
  6. FISH OIL [Concomitant]
     Dosage: UNK

REACTIONS (1)
  - Vaginal haemorrhage [Unknown]
